FAERS Safety Report 7605421-1 (Version None)
Quarter: 2011Q3

REPORT INFORMATION
  Report Type: 
  Country: None (occurrence: None)
  Receive Date: 20110705
  Receipt Date: 20110624
  Transmission Date: 20111222
  Serious: Yes (Other)
  Sender: FDA-Public Use
  Company Number: GB-ACCORD-009662

PATIENT
  Age: 47 Year
  Sex: Male
  Weight: 113 kg

DRUGS (15)
  1. CITALOPRAM HYDROBROMIDE [Suspect]
     Indication: PRODUCT USED FOR UNKNOWN INDICATION
     Dosage: 10.00-MG
  2. OXYCODONE HCL [Suspect]
     Indication: PAIN
     Dosage: 5.00-MG
  3. VITAMIN K TAB [Suspect]
     Indication: PRODUCT USED FOR UNKNOWN INDICATION
  4. WARFARIN SODIUM [Suspect]
     Indication: EMBOLISM VENOUS
     Dosage: 2.50-MG
  5. DEXAMETHASONE [Suspect]
     Indication: PRODUCT USED FOR UNKNOWN INDICATION
     Dosage: 20.00-MG / INTRAVENOUS (NOT OTHERWISE SPECIFIED)
     Route: 042
  6. ERLOTINIB HYDROCHLORIDE [Suspect]
     Indication: LUNG NEOPLASM MALIGNANT
     Dosage: 150.00-MG / ORAL
     Route: 048
  7. GRANISETRON [Suspect]
     Indication: PRODUCT USED FOR UNKNOWN INDICATION
     Dosage: 1.00-MG / INTRAVENOUS (NOT OTHERWISE SPECIFIED)
     Route: 042
  8. ALPRAZOLAM [Suspect]
     Indication: PRODUCT USED FOR UNKNOWN INDICATION
     Dosage: 5.00-MG-2.00 TIMES PER-1.0DAYS
  9. PACLITAXEL [Suspect]
     Indication: PRODUCT USED FOR UNKNOWN INDICATION
     Dosage: 130.00-MG / INTRAVENOUS (NOT OTHERWISE SPECIFIED)
     Route: 042
  10. CARBOPLATIN [Suspect]
     Indication: PRODUCT USED FOR UNKNOWN INDICATION
     Dosage: 285.00-MG / INTRAVENOUS (NOT OTHERWISE SPECIFIED)
     Route: 042
  11. CIMETIDINE [Suspect]
     Indication: PRODUCT USED FOR UNKNOWN INDICATION
     Dosage: 300.00-MG / INTRAVENOUS (NOT OTHERWISE SPECIFIED)
     Route: 042
  12. LOPERAMIDE [Suspect]
     Indication: PRODUCT USED FOR UNKNOWN INDICATION
  13. DARBEPOETIN ALFA(DARBOPOETIN ALFA) [Suspect]
     Indication: PRODUCT USED FOR UNKNOWN INDICATION
     Dosage: SUBCUTANEOUS
     Route: 058
  14. DIPHENHYDRAMINE HCL [Suspect]
     Indication: PRODUCT USED FOR UNKNOWN INDICATION
     Dosage: 24.00-MG / INTRAVENOUS (NOT OTHERWISE SPECIFIED)
     Route: 042
  15. BEVACIZUMAB(BEVACIZUMAB) [Suspect]
     Indication: PRODUCT USED FOR UNKNOWN INDICATION
     Dosage: 1497.00-MG

REACTIONS (7)
  - SWELLING [None]
  - INTERNATIONAL NORMALISED RATIO INCREASED [None]
  - CONTUSION [None]
  - DIARRHOEA [None]
  - HAEMATOMA [None]
  - RASH [None]
  - DRUG INTERACTION [None]
